FAERS Safety Report 6680112-2 (Version None)
Quarter: 2010Q2

REPORT INFORMATION
  Report Type: 
  Country: None (occurrence: None)
  Receive Date: 20100413
  Receipt Date: 20100406
  Transmission Date: 20101027
  Serious: Yes (Hospitalization)
  Sender: FDA-Public Use
  Company Number: PHHO2010GB02732

PATIENT
  Sex: Female
  Weight: 75.2 kg

DRUGS (12)
  1. AFINITOR [Suspect]
     Indication: ACUTE MYELOID LEUKAEMIA
     Dosage: UNK
     Route: 048
     Dates: start: 20090825
  2. AFINITOR [Suspect]
     Dosage: 5MG/O.D
     Route: 048
     Dates: start: 20091204, end: 20091205
  3. DAUNORUBICIN HCL [Concomitant]
  4. ARA-C [Concomitant]
  5. MYLOTARG [Concomitant]
  6. ETOPOSIDE [Concomitant]
  7. TIOTROPIUM [Concomitant]
  8. NICOTINELL TTS [Concomitant]
  9. SERETIDE [Concomitant]
  10. DOXYCYCLINE [Concomitant]
  11. AMILORIDE HYDROCHLORIDE [Concomitant]
  12. BENDROFLUAZIDE [Concomitant]
     Indication: HYPERTENSION

REACTIONS (8)
  - DEHYDRATION [None]
  - DIARRHOEA [None]
  - DYSPEPSIA [None]
  - HERPES SIMPLEX [None]
  - NAUSEA [None]
  - ORAL HERPES [None]
  - RENAL IMPAIRMENT [None]
  - VOMITING [None]
